FAERS Safety Report 6408061-5 (Version None)
Quarter: 2009Q4

REPORT INFORMATION
  Report Type: 
  Country: None (occurrence: None)
  Receive Date: 20091021
  Receipt Date: 20091013
  Transmission Date: 20100525
  Serious: Yes (Other)
  Sender: FDA-Public Use
  Company Number: US-ELI_LILLY_AND_COMPANY-US200910002812

PATIENT
  Sex: Female

DRUGS (6)
  1. HUMALOG [Suspect]
  2. HUMALOG MIX 75/25 [Suspect]
  3. HUMALOG MIX 75/25 [Suspect]
  4. JANUVIA [Concomitant]
  5. METFORMIN [Concomitant]
  6. INSULIN [Concomitant]
     Indication: DIABETES MELLITUS

REACTIONS (5)
  - CARDIAC FAILURE [None]
  - FALL [None]
  - MUSCULOSKELETAL PAIN [None]
  - ROAD TRAFFIC ACCIDENT [None]
  - UPPER LIMB FRACTURE [None]
